FAERS Safety Report 11681501 (Version 2)
Quarter: 2016Q1

REPORT INFORMATION
  Report Type: Spontaneous
  Country: GB (occurrence: GB)
  Receive Date: 20151029
  Receipt Date: 20160325
  Transmission Date: 20160525
  Serious: Yes (Other)
  Sender: FDA-Public Use
  Company Number: GB-HOSPIRA-3056417

PATIENT
  Age: 60 Year
  Sex: Male
  Weight: 85 kg

DRUGS (8)
  1. OXALIPLATIN FRESENIUS KABI [Suspect]
     Active Substance: OXALIPLATIN
     Indication: COLORECTAL CANCER
     Route: 065
     Dates: start: 20141126
  2. EMEND [Concomitant]
     Active Substance: APREPITANT
     Indication: NAUSEA
     Dosage: CUMULATIVE DOSAGE 80 MG, 2 DAYS
     Route: 048
     Dates: start: 20141128
  3. BAXTER SALINE [Suspect]
     Active Substance: SODIUM CHLORIDE
     Indication: COLORECTAL CANCER
     Route: 042
     Dates: start: 20141126
  4. FLUOROURACIL. [Suspect]
     Active Substance: FLUOROURACIL
     Indication: COLORECTAL CANCER
     Route: 042
     Dates: start: 20141222
  5. RANITIDINE [Concomitant]
     Active Substance: RANITIDINE\RANITIDINE HYDROCHLORIDE
     Indication: PRODUCT USED FOR UNKNOWN INDICATION
     Dosage: BD
     Route: 048
  6. EMEND [Concomitant]
     Active Substance: APREPITANT
     Indication: NAUSEA
     Dates: start: 20141126, end: 20141126
  7. FLUOROURACIL. [Suspect]
     Active Substance: FLUOROURACIL
     Indication: COLORECTAL CANCER
     Route: 040
     Dates: start: 20141126
  8. CALCIUM FOLINATE [Suspect]
     Active Substance: LEUCOVORIN CALCIUM
     Indication: CHEMOTHERAPY
     Route: 065
     Dates: start: 20141126

REACTIONS (10)
  - Oral pain [Recovered/Resolved]
  - Headache [Recovered/Resolved]
  - Neuropathy peripheral [Not Recovered/Not Resolved]
  - Incorrect drug administration rate [Not Recovered/Not Resolved]
  - Cough [Not Recovered/Not Resolved]
  - Device infusion issue [Not Recovered/Not Resolved]
  - Mood swings [Not Recovered/Not Resolved]
  - Malaise [Recovered/Resolved]
  - Fatigue [Recovered/Resolved with Sequelae]
  - Decreased appetite [Recovered/Resolved]

NARRATIVE: CASE EVENT DATE: 20141127
